FAERS Safety Report 7956291-3 (Version None)
Quarter: 2011Q4

REPORT INFORMATION
  Report Type: 
  Country: None (occurrence: None)
  Receive Date: 20111205
  Receipt Date: 20111122
  Transmission Date: 20120403
  Serious: Yes (Hospitalization)
  Sender: FDA-Public Use
  Company Number: US-ELI_LILLY_AND_COMPANY-US201105004859

PATIENT
  Sex: Female
  Weight: 67.12 kg

DRUGS (10)
  1. VENTOLIN [Concomitant]
  2. VITAMIN D [Concomitant]
     Dosage: UNK, QD
  3. LEVEMIR [Concomitant]
     Dosage: 5 MG, EACH EVENING
  4. METFORMIN HCL [Concomitant]
     Dosage: 100 MG, BID
  5. AMITRIPTYLINE HCL [Concomitant]
     Dosage: 100 MG, EACH EVENING
  6. CITALOPRAM [Concomitant]
     Dosage: 40 MG, QD
  7. CALCIUM [Concomitant]
     Dosage: UNK, QD
  8. FORTEO [Suspect]
     Indication: OSTEOPOROSIS
     Dosage: 20 UG, QD
     Route: 065
  9. CRESTOR [Concomitant]
     Dosage: 20 UG, QD
  10. JANUVIA [Concomitant]
     Dosage: 100 MG, QD

REACTIONS (4)
  - URINARY INCONTINENCE [None]
  - INJECTION SITE PAIN [None]
  - MUSCLE SPASMS [None]
  - PAIN IN EXTREMITY [None]
